FAERS Safety Report 13570862 (Version 1)
Quarter: 2017Q2

REPORT INFORMATION
  Report Type: Spontaneous
  Country: US (occurrence: US)
  Receive Date: 20170522
  Receipt Date: 20170522
  Transmission Date: 20170830
  Serious: Yes (Hospitalization, Other)
  Sender: FDA-Public Use
  Company Number: None

PATIENT
  Age: 63 Year
  Sex: Male

DRUGS (1)
  1. VIVITROL [Suspect]
     Active Substance: NALTREXONE

REACTIONS (6)
  - Oedema [None]
  - Joint swelling [None]
  - Infusion site reaction [None]
  - Arthralgia [None]
  - Pain [None]
  - Eosinophilia [None]

NARRATIVE: CASE EVENT DATE: 20170517
